FAERS Safety Report 6887998-7 (Version None)
Quarter: 2010Q3

REPORT INFORMATION
  Report Type: 
  Country: None (occurrence: None)
  Receive Date: 20100730
  Receipt Date: 20100726
  Transmission Date: 20110219
  Serious: Yes (Congenital Anomaly)
  Sender: FDA-Public Use
  Company Number: A0872379A

PATIENT
  Sex: Female

DRUGS (5)
  1. COMBIVIR [Suspect]
     Indication: HIV INFECTION
     Dates: start: 20030702, end: 20040908
  2. VIRACEPT [Suspect]
     Indication: HIV INFECTION
     Dates: start: 20030702, end: 20040908
  3. FERROUS SULFATE [Concomitant]
  4. ISOXSUPRINE HCL [Concomitant]
  5. NYSTATIN [Concomitant]

REACTIONS (2)
  - CLEFT PALATE [None]
  - DRUG EXPOSURE DURING PREGNANCY [None]
